FAERS Safety Report 24294264 (Version 2)
Quarter: 2025Q3

REPORT INFORMATION
  Report Type: Spontaneous
  Country: US (occurrence: US)
  Receive Date: 20240906
  Receipt Date: 20250905
  Transmission Date: 20251021
  Serious: No
  Sender: DOMPE FARMACEUTICI
  Company Number: US-FARMAPROD-202406-2270

PATIENT
  Age: 75 Year
  Sex: Female

DRUGS (15)
  1. OXERVATE [Suspect]
     Active Substance: CENEGERMIN-BKBJ
     Indication: Neurotrophic keratopathy
     Route: 047
     Dates: start: 20240612
  2. OXERVATE [Suspect]
     Active Substance: CENEGERMIN-BKBJ
  3. OXERVATE [Suspect]
     Active Substance: CENEGERMIN-BKBJ
     Dates: start: 20240610
  4. GINGER [Concomitant]
     Active Substance: GINGER
  5. MULTIVITAMIN 50 PLUS [Concomitant]
  6. REFRESH CLASSIC [Concomitant]
     Active Substance: POLYVINYL ALCOHOL\POVIDONE
     Route: 061
     Dates: start: 2022
  7. POLYMYXIN B SUL-TRIMETHOPRIM [Concomitant]
     Route: 061
     Dates: start: 20240507, end: 20240820
  8. PRED FORTE [Concomitant]
     Active Substance: PREDNISOLONE ACETATE
  9. HYDROCHLOROTHIAZIDE [Concomitant]
     Active Substance: HYDROCHLOROTHIAZIDE
  10. BISOPROLOL FUMARATE [Concomitant]
     Active Substance: BISOPROLOL FUMARATE
  11. LOSARTAN POTASSIUM [Concomitant]
     Active Substance: LOSARTAN POTASSIUM
  12. NIFEDIPINE [Concomitant]
     Active Substance: NIFEDIPINE
  13. UNIQUE [Concomitant]
  14. ADVIL [Concomitant]
     Active Substance: IBUPROFEN
  15. PREDNISOLONE [Concomitant]
     Active Substance: PREDNISOLONE
     Route: 061
     Dates: start: 20210329

REACTIONS (14)
  - Eye pain [Recovering/Resolving]
  - Photophobia [Unknown]
  - Accidental overdose [Unknown]
  - Wrong technique in product usage process [Unknown]
  - Eye swelling [Recovering/Resolving]
  - Eye irritation [Recovering/Resolving]
  - Foreign body sensation in eyes [Recovering/Resolving]
  - Eyelid ptosis [Unknown]
  - Vision blurred [Recovering/Resolving]
  - Swelling of eyelid [Recovering/Resolving]
  - Dry eye [Unknown]
  - Lacrimation increased [Not Recovered/Not Resolved]
  - Superficial injury of eye [Recovered/Resolved]
  - Ocular discomfort [Not Recovered/Not Resolved]

NARRATIVE: CASE EVENT DATE: 20240612
